FAERS Safety Report 17816267 (Version 2)
Quarter: 2020Q4

REPORT INFORMATION
  Report Type: Report from Study
  Country: US (occurrence: US)
  Receive Date: 20200522
  Receipt Date: 20201218
  Transmission Date: 20210113
  Serious: No
  Sender: FDA-Public Use
  Company Number: US-SA-2020SA132813

PATIENT

DRUGS (5)
  1. PETROLEUM JELLY [Concomitant]
     Active Substance: PETROLATUM
  2. VANICREAM [Concomitant]
     Active Substance: TITANIUM DIOXIDE\ZINC OXIDE
  3. DUPILUMAB [Suspect]
     Active Substance: DUPILUMAB
     Indication: DERMATITIS ATOPIC
     Dosage: UNK UNK, 1X
     Route: 058
     Dates: start: 20190201, end: 20190201
  4. AQUAPHOR [Concomitant]
     Active Substance: PETROLATUM
  5. DUPILUMAB [Suspect]
     Active Substance: DUPILUMAB
     Dosage: 300 MG, QOW
     Route: 058
     Dates: start: 201902

REACTIONS (11)
  - Dry skin [Unknown]
  - Skin exfoliation [Unknown]
  - Hordeolum [Unknown]
  - Therapeutic response decreased [Unknown]
  - Skin tightness [Unknown]
  - Eye inflammation [Unknown]
  - Stress [Unknown]
  - Eye pain [Unknown]
  - Condition aggravated [Unknown]
  - Pruritus [Unknown]
  - Rash [Unknown]

NARRATIVE: CASE EVENT DATE: 2020
